FAERS Safety Report 7654690 (Version 2)
Quarter: 2014Q3

REPORT INFORMATION
  Report Type: Spontaneous
  Country: IT (occurrence: None)
  Receive Date: 20101012
  Receipt Date: 20140711
  Transmission Date: 20150326
  Serious: Yes (Hospitalization, Other)
  Sender: FDA-Public Use
  Company Number: 717450

PATIENT
  Age: 66 Year
  Sex: Male

DRUGS (2)
  1. OXALIPLATIN. [Suspect]
     Active Substance: OXALIPLATIN
     Indication: ADENOCARCINOMA OF COLON
     Dosage: 140 MG/M^2 EVERY 21 DAYS
  2. FLUOROURACIL. [Concomitant]
     Active Substance: FLUOROURACIL

REACTIONS (8)
  - Renal tubular acidosis [None]
  - Lethargy [None]
  - Metabolic acidosis [None]
  - Pyrexia [None]
  - Anxiety [None]
  - Headache [None]
  - Dehydration [None]
  - Mental status changes [None]
